FAERS Safety Report 5186985-7 (Version None)
Quarter: 2006Q4

REPORT INFORMATION
  Report Type: 
  Country: None (occurrence: None)
  Receive Date: 20061220
  Receipt Date: 20060918
  Transmission Date: 20070319
  Serious: No
  Sender: FDA-Public Use
  Company Number: US-AMGEN-US193951

PATIENT
  Sex: Female
  Weight: 47.7 kg

DRUGS (1)
  1. ENBREL [Suspect]
     Indication: RHEUMATOID ARTHRITIS
     Route: 058
     Dates: start: 20060718, end: 20060921

REACTIONS (12)
  - ABDOMINAL PAIN [None]
  - CHEST DISCOMFORT [None]
  - DIZZINESS [None]
  - DYSPNOEA [None]
  - HEADACHE [None]
  - KIDNEY INFECTION [None]
  - MUSCULAR WEAKNESS [None]
  - NAUSEA [None]
  - RASH MACULAR [None]
  - STOMATITIS [None]
  - SWELLING FACE [None]
  - VOMITING [None]
